FAERS Safety Report 26024909 (Version 1)
Quarter: 2025Q4

REPORT INFORMATION
  Report Type: Spontaneous
  Country: US (occurrence: US)
  Receive Date: 20251111
  Receipt Date: 20251111
  Transmission Date: 20260117
  Serious: No
  Sender: MACLEODS
  Company Number: US-MACLEODS PHARMA-MAC2025056211

PATIENT

DRUGS (1)
  1. ESZOPICLONE [Suspect]
     Active Substance: ESZOPICLONE
     Indication: Product used for unknown indication
     Dosage: 33342030111, L 36 BLUE ROUND (NPI: 1669498515, DEA: BP9587847, KSLIC #2-10031)
     Route: 065

REACTIONS (1)
  - Hypersensitivity [Unknown]
